FAERS Safety Report 24752894 (Version 1)
Quarter: 2024Q4

REPORT INFORMATION
  Report Type: Spontaneous
  Country: US (occurrence: None)
  Receive Date: 20241218
  Receipt Date: 20241218
  Transmission Date: 20250114
  Serious: No
  Sender: Public
  Company Number: None

PATIENT
  Sex: Female

DRUGS (1)
  1. SKYRIZI [Suspect]
     Active Substance: RISANKIZUMAB-RZAA
     Dosage: OTHER FREQUENCY : EVERY 12 WEEKS ;?
     Route: 058
     Dates: start: 202409

REACTIONS (3)
  - Psoriasis [None]
  - COVID-19 [None]
  - Therapy interrupted [None]
